FAERS Safety Report 8260255-2 (Version None)
Quarter: 2012Q2

REPORT INFORMATION
  Report Type: 
  Country: None (occurrence: None)
  Receive Date: 20120404
  Receipt Date: 20120329
  Transmission Date: 20120825
  Serious: Yes (Hospitalization, Other)
  Sender: FDA-Public Use
  Company Number: US-PFIZER INC-2009314330

PATIENT
  Sex: Male

DRUGS (31)
  1. BACITRACIN [Concomitant]
     Indication: RASH
     Dosage: UNK
     Dates: start: 20080506
  2. SULAR [Concomitant]
     Dosage: 20 MG, UNK
     Dates: start: 20080506
  3. HALDOL [Concomitant]
     Indication: AGITATION
     Dosage: UNK
     Dates: start: 20080508
  4. NEXIUM [Concomitant]
     Dosage: 40 MG, UNK
     Dates: start: 20080429
  5. AMLODIPINE [Concomitant]
     Dosage: 5 MG, UNK
     Dates: start: 20080506
  6. ALBUTEROL [Concomitant]
     Indication: RESPIRATORY DISORDER
     Dosage: 0.5 %, UNK
     Dates: start: 20080509
  7. TYLENOL [Concomitant]
     Dosage: UNK
     Dates: start: 20080428
  8. PROMETHAZINE [Concomitant]
     Dosage: UNK
     Dates: start: 20080428
  9. SOLU-MEDROL [Concomitant]
     Dosage: UNK
     Dates: start: 20080506
  10. HEPARIN [Concomitant]
     Dosage: UNK
     Dates: start: 20080507
  11. PHOSLO [Concomitant]
     Dosage: UNK
     Dates: start: 20080508
  12. DILANTIN [Suspect]
     Dosage: 100 MG, 3X/DAY
     Route: 042
     Dates: start: 20080428
  13. HYTONE [Concomitant]
     Dosage: UNK %, UNK
     Dates: start: 20080503
  14. NITROGLYCERIN [Concomitant]
     Dosage: 0.4 MG, UNK
     Dates: start: 20080503
  15. LOPRESSOR [Concomitant]
     Dosage: 50 MG, UNK
     Dates: start: 20080508
  16. ATROVENT [Concomitant]
     Indication: RESPIRATORY DISORDER
     Dosage: UNK
     Dates: start: 20080509
  17. NITROPRUSSIDE SODIUM [Concomitant]
     Dosage: UNK
     Dates: start: 20080509
  18. MONOPRIL [Concomitant]
     Dosage: UNK
     Dates: start: 20080509
  19. ACETYLSALICYLIC ACID [Concomitant]
     Dosage: UNK
     Dates: start: 20080428
  20. APRESOLINE [Concomitant]
     Dosage: UNK
     Dates: start: 20080503
  21. ATIVAN [Concomitant]
     Dosage: UNK
     Dates: start: 20080509
  22. POTASSIUM [Concomitant]
     Dosage: 40 MEQ, UNK
     Dates: start: 20080509
  23. VANCOMYCIN [Concomitant]
     Dosage: 1 G, UNK
     Dates: start: 20080502
  24. VERSED [Concomitant]
     Dosage: 2 MG, UNK
     Dates: start: 20080503
  25. TOBRADEX [Concomitant]
     Dosage: UNK
     Dates: start: 20080505
  26. ZOSYN [Concomitant]
     Dosage: UNK
     Dates: start: 20080430
  27. DEXTROSE [Concomitant]
     Dosage: UNK
     Dates: start: 20080502
  28. FENTANYL [Concomitant]
     Dosage: UNK
     Dates: start: 20080504
  29. IMDUR [Concomitant]
     Dosage: UNK
     Dates: start: 20080508
  30. PERCOCET [Concomitant]
     Indication: PAIN
     Dosage: UNK
     Dates: start: 20080509
  31. DIPRIVAN [Concomitant]
     Dosage: UNK
     Dates: start: 20080504

REACTIONS (2)
  - STEVENS-JOHNSON SYNDROME [None]
  - TOXIC EPIDERMAL NECROLYSIS [None]
